FAERS Safety Report 6399088-0 (Version None)
Quarter: 2009Q4

REPORT INFORMATION
  Report Type: 
  Country: None (occurrence: None)
  Receive Date: 20091008
  Receipt Date: 20090921
  Transmission Date: 20100525
  Serious: Yes (Hospitalization, Other)
  Sender: FDA-Public Use
  Company Number: 20090423

PATIENT
  Age: 3 Month
  Sex: Female

DRUGS (1)
  1. DOPAMINE HYDROCHLORIDE [Suspect]
     Indication: HAEMODYNAMIC INSTABILITY
     Dosage: INTRAVENOUS
     Route: 042

REACTIONS (4)
  - BRACHIAL PLEXUS INJURY [None]
  - EXTRAVASATION [None]
  - HAEMORRHAGE [None]
  - SKIN NECROSIS [None]
